FAERS Safety Report 7213038-6 (Version None)
Quarter: 2011Q1

REPORT INFORMATION
  Report Type: 
  Country: None (occurrence: None)
  Receive Date: 20110106
  Receipt Date: 20101227
  Transmission Date: 20110831
  Serious: Yes (Hospitalization)
  Sender: FDA-Public Use
  Company Number: B0688892A

PATIENT
  Sex: Female

DRUGS (6)
  1. ENALAPRIL [Concomitant]
     Indication: HYPERTENSION
     Dosage: 10MG PER DAY
     Route: 048
     Dates: end: 20101208
  2. ARIMIDEX [Concomitant]
     Indication: BREAST CANCER
     Dosage: 1MG PER DAY
     Route: 048
     Dates: end: 20101208
  3. TAKEPRON [Concomitant]
     Indication: DECREASED APPETITE
     Dosage: 30MG PER DAY
     Route: 048
     Dates: start: 20101204, end: 20101208
  4. VALTREX [Suspect]
     Indication: HERPES ZOSTER
     Dosage: 3000MG PER DAY
     Route: 048
     Dates: start: 20101201, end: 20101207
  5. ALESION [Concomitant]
     Indication: PRURITUS
     Dosage: 20MG PER DAY
     Route: 048
     Dates: start: 20101201, end: 20101208
  6. RINGEREAZE [Suspect]
     Indication: HERPES ZOSTER
     Dosage: 60MG PER DAY
     Route: 048
     Dates: start: 20101201, end: 20101208

REACTIONS (9)
  - HAEMOGLOBIN DECREASED [None]
  - RENAL FAILURE ACUTE [None]
  - RED BLOOD CELL COUNT DECREASED [None]
  - DECREASED APPETITE [None]
  - BLOOD CREATININE INCREASED [None]
  - BLOOD POTASSIUM INCREASED [None]
  - BLOOD UREA INCREASED [None]
  - NAUSEA [None]
  - HAEMATOCRIT DECREASED [None]
